FAERS Safety Report 18780311 (Version 2)
Quarter: 2024Q4

REPORT INFORMATION
  Report Type: Spontaneous
  Country: GB (occurrence: GB)
  Receive Date: 20210125
  Receipt Date: 20241205
  Transmission Date: 20250115
  Serious: Yes (Life-Threatening, Hospitalization, Disabling, Other)
  Sender: AUROBINDO
  Company Number: GB-AUROBINDO-AUR-APL-2011-04925

PATIENT
  Age: 31 Year
  Sex: Female
  Weight: 64 kg

DRUGS (24)
  1. MIRTAZAPINE [Interacting]
     Active Substance: MIRTAZAPINE
     Indication: Depression
     Dosage: 30 MG,TWO TIMES A DAY,
     Route: 048
     Dates: start: 20100923, end: 20101108
  2. PAROXETINE HYDROCHLORIDE [Interacting]
     Active Substance: PAROXETINE HYDROCHLORIDE
     Indication: Post-traumatic stress disorder
     Dosage: 40 MG,ONCE A DAY,
     Route: 048
     Dates: start: 19990801, end: 20110706
  3. PAROXETINE HYDROCHLORIDE [Interacting]
     Active Substance: PAROXETINE HYDROCHLORIDE
     Indication: Depression
  4. DOMPERIDONE [Suspect]
     Active Substance: DOMPERIDONE
     Indication: Product used for unknown indication
     Dosage: UNK UNK,UNK,
     Route: 065
  5. CODEINE PHOSPHATE [Suspect]
     Active Substance: CODEINE PHOSPHATE
     Indication: Analgesic therapy
     Dosage: UNK UNK,UNK,
     Route: 048
     Dates: start: 2002, end: 2002
  6. CODEINE PHOSPHATE [Suspect]
     Active Substance: CODEINE PHOSPHATE
     Indication: Serotonin syndrome
     Dosage: UNK
     Route: 048
     Dates: start: 2008, end: 2008
  7. CODEINE PHOSPHATE [Suspect]
     Active Substance: CODEINE PHOSPHATE
     Dosage: UNK UNK,ONCE A DAY,
     Route: 048
     Dates: start: 20110615, end: 20110723
  8. QUETIAPINE [Suspect]
     Active Substance: QUETIAPINE
     Indication: Psychotic disorder
     Dosage: 300 MILLIGRAM
     Route: 048
     Dates: start: 20110224, end: 20110506
  9. TRAMADOL [Suspect]
     Active Substance: TRAMADOL
     Indication: Analgesic therapy
     Dosage: UNK UNK,FOUR TIMES/DAY,
     Route: 048
     Dates: start: 20080722
  10. TRAMADOL [Suspect]
     Active Substance: TRAMADOL
     Dosage: UNK UNK,FOUR TIMES/DAY,
     Route: 048
     Dates: start: 20081201, end: 20101210
  11. OMEPRAZOLE [Suspect]
     Active Substance: OMEPRAZOLE
     Indication: Dyspepsia
     Dosage: 20 MG,ONCE A DAY,
     Route: 065
     Dates: start: 20110525
  12. CLONAZEPAM [Suspect]
     Active Substance: CLONAZEPAM
     Indication: Sedation
     Dosage: UNK,UNSURE
     Route: 048
     Dates: start: 20110224, end: 20110410
  13. LORAZEPAM [Suspect]
     Active Substance: LORAZEPAM
     Indication: Sedation
     Dosage: 1 MG,FOUR TIMES/DAY,
     Route: 048
     Dates: start: 20110523, end: 20110627
  14. LORAZEPAM [Suspect]
     Active Substance: LORAZEPAM
     Indication: Muscle spasms
     Dosage: 1 MILLIGRAM
     Route: 065
     Dates: start: 20110224, end: 20110410
  15. PROCYCLIDINE [Suspect]
     Active Substance: PROCYCLIDINE
     Indication: Extrapyramidal disorder
     Dosage: 5 MG,3 TIMES A DAY,
     Route: 048
     Dates: start: 20110503, end: 20110510
  16. PROCYCLIDINE [Suspect]
     Active Substance: PROCYCLIDINE
     Indication: Oculogyric crisis
     Dosage: UNK
     Route: 065
     Dates: start: 1995, end: 1996
  17. PROCYCLIDINE [Suspect]
     Active Substance: PROCYCLIDINE
     Indication: Extrapyramidal disorder
  18. PAROXETINE HYDROCHLORIDE [Suspect]
     Active Substance: PAROXETINE HYDROCHLORIDE
     Indication: Depression
     Dosage: 20MG THREE TIMES PER DAY
     Route: 048
     Dates: start: 19990801, end: 201105
  19. PAROXETINE HYDROCHLORIDE [Suspect]
     Active Substance: PAROXETINE HYDROCHLORIDE
     Indication: Product used for unknown indication
     Dosage: 20 MG,TWO TIMES A DAY,
     Route: 065
     Dates: start: 201105, end: 20110706
  20. AMITRIPTYLINE [Suspect]
     Active Substance: AMITRIPTYLINE
     Indication: Muscle spasms
     Dosage: 25 MG,ONCE A DAY,
     Route: 065
     Dates: start: 20110810
  21. AMITRIPTYLINE [Suspect]
     Active Substance: AMITRIPTYLINE
     Indication: Neuralgia
  22. DIAZEPAM [Suspect]
     Active Substance: DIAZEPAM
     Indication: Muscle spasms
     Dosage: 5 MG,FOUR TIMES/DAY,
     Route: 065
     Dates: start: 20110725
  23. DIAZEPAM [Suspect]
     Active Substance: DIAZEPAM
     Indication: Neuralgia
     Dosage: 8 MG,DAILY,
     Route: 065
  24. DIAZEPAM [Suspect]
     Active Substance: DIAZEPAM
     Indication: Muscle spasms

REACTIONS (84)
  - Serotonin syndrome [Not Recovered/Not Resolved]
  - Neuroleptic malignant syndrome [Unknown]
  - Psychotic disorder [Unknown]
  - Mania [Unknown]
  - Agitation [Unknown]
  - Suicidal ideation [Not Recovered/Not Resolved]
  - Hallucinations, mixed [Unknown]
  - Paralysis [Unknown]
  - Schizophrenia [Unknown]
  - Contusion [Unknown]
  - Dyskinesia [Unknown]
  - Seizure [Unknown]
  - Cyanosis [Recovering/Resolving]
  - Swollen tongue [Unknown]
  - Anxiety [Unknown]
  - Tachycardia [Unknown]
  - Hypoaesthesia oral [Unknown]
  - Delirium [Unknown]
  - Depression [Unknown]
  - Muscle spasms [Recovering/Resolving]
  - Cogwheel rigidity [Unknown]
  - Illness [Unknown]
  - Sensory loss [Recovering/Resolving]
  - Decreased appetite [Unknown]
  - Blood sodium decreased [Unknown]
  - Vision blurred [Unknown]
  - Dissociation [Not Recovered/Not Resolved]
  - Diarrhoea [Unknown]
  - Dyspnoea [Unknown]
  - Disorientation [Not Recovered/Not Resolved]
  - Dizziness [Recovering/Resolving]
  - Drooling [Unknown]
  - Exposure during pregnancy [Unknown]
  - Toxicity to various agents [Unknown]
  - Tinnitus [Recovering/Resolving]
  - Emotional disorder [Unknown]
  - Swelling face [Recovering/Resolving]
  - Feeling of despair [Unknown]
  - Derealisation [Not Recovered/Not Resolved]
  - Pyrexia [Unknown]
  - Gastric pH decreased [Unknown]
  - Headache [Recovering/Resolving]
  - Heart rate increased [Unknown]
  - Incontinence [Recovering/Resolving]
  - Feeling jittery [Unknown]
  - Arthralgia [Unknown]
  - Limb injury [Recovering/Resolving]
  - Menstrual disorder [Unknown]
  - Disturbance in attention [Unknown]
  - Mood swings [Unknown]
  - Muscle disorder [Unknown]
  - Nightmare [Unknown]
  - Hypoaesthesia [Not Recovered/Not Resolved]
  - Eye pain [Recovering/Resolving]
  - Paraesthesia [Unknown]
  - Premature labour [Unknown]
  - Pruritus [Recovering/Resolving]
  - Mydriasis [Recovering/Resolving]
  - Drug interaction [Unknown]
  - Restlessness [Unknown]
  - Skin discolouration [Not Recovered/Not Resolved]
  - Sleep disorder [Unknown]
  - Aphasia [Not Recovered/Not Resolved]
  - Parosmia [Recovering/Resolving]
  - Hyperhidrosis [Recovering/Resolving]
  - H1N1 influenza [Unknown]
  - Tremor [Not Recovered/Not Resolved]
  - Balance disorder [Unknown]
  - Urinary retention [Unknown]
  - Visual impairment [Unknown]
  - Vomiting [Recovering/Resolving]
  - Gait disturbance [Unknown]
  - Asthenia [Unknown]
  - Speech disorder [Unknown]
  - Drug withdrawal syndrome [Unknown]
  - Dystonia [Unknown]
  - Feeling of body temperature change [Unknown]
  - Musculoskeletal stiffness [Unknown]
  - Pallor [Unknown]
  - Muscle rigidity [Unknown]
  - Fatigue [Unknown]
  - Confusional state [Not Recovered/Not Resolved]
  - Depersonalisation/derealisation disorder [Not Recovered/Not Resolved]
  - Restless legs syndrome [Not Recovered/Not Resolved]

NARRATIVE: CASE EVENT DATE: 20030101
